FAERS Safety Report 5202925-6 (Version None)
Quarter: 2006Q4

REPORT INFORMATION
  Report Type: 
  Country: None (occurrence: None)
  Receive Date: 20061016
  Receipt Date: 20060830
  Transmission Date: 20070319
  Serious: No
  Sender: FDA-Public Use
  Company Number: 2006SP003163

PATIENT
  Age: 44 Year
  Sex: Female
  Weight: 61.2356 kg

DRUGS (1)
  1. LUNESTA [Suspect]
     Indication: FIBROMYALGIA
     Dosage: 2 MG; ORAL
     Route: 048

REACTIONS (1)
  - INSOMNIA [None]
